FAERS Safety Report 6258230-2 (Version None)
Quarter: 2009Q3

REPORT INFORMATION
  Report Type: 
  Country: None (occurrence: None)
  Receive Date: 20090702
  Receipt Date: 20090702
  Transmission Date: 20100115
  Serious: Yes (Life-Threatening, Other)
  Sender: FDA-Public Use
  Company Number: None

PATIENT
  Age: 55 Year
  Sex: Female
  Weight: 86.1834 kg

DRUGS (2)
  1. CYCLOBENZAPRINE [Suspect]
     Indication: ARTHRITIS
     Dosage: 10 MG. ONCE DAILY PO
     Route: 048
     Dates: start: 20041029, end: 20080929
  2. CYCLOBENZAPRINE [Suspect]
     Indication: MUSCLE SPASMS
     Dosage: 10 MG. ONCE DAILY PO
     Route: 048
     Dates: start: 20041029, end: 20080929

REACTIONS (2)
  - HEART RATE IRREGULAR [None]
  - SUPRAVENTRICULAR TACHYCARDIA [None]
